FAERS Safety Report 12404395 (Version 1)
Quarter: 2016Q2

REPORT INFORMATION
  Report Type: Spontaneous
  Country: SE (occurrence: SE)
  Receive Date: 20160525
  Receipt Date: 20160525
  Transmission Date: 20160815
  Serious: Yes (Hospitalization)
  Sender: FDA-Public Use
  Company Number: SE-CONCORDIA PHARMACEUTICALS INC.-CO-UX-SE-2015-015

PATIENT
  Age: 58 Year
  Sex: Female

DRUGS (1)
  1. ALFUZOSIN HYDROCHLORIDE. [Suspect]
     Active Substance: ALFUZOSIN HYDROCHLORIDE
     Indication: NEPHROLITHIASIS
     Route: 065
     Dates: start: 20150327, end: 20150328

REACTIONS (3)
  - Dizziness [None]
  - Product use issue [None]
  - Syncope [Recovered/Resolved]

NARRATIVE: CASE EVENT DATE: 20150328
